FAERS Safety Report 4802317-5 (Version None)
Quarter: 2005Q4

REPORT INFORMATION
  Report Type: 
  Country: None (occurrence: None)
  Receive Date: 20051012
  Receipt Date: 20050929
  Transmission Date: 20060501
  Serious: Yes (Disabling)
  Sender: FDA-Public Use
  Company Number: HQWYE172823DEC04

PATIENT
  Age: 71 Year
  Sex: Male

DRUGS (5)
  1. CORDARONE [Suspect]
     Indication: ATRIAL FIBRILLATION
     Dosage: 200 MG 1X PER 1 DAY; ORAL
     Route: 048
     Dates: start: 19990711
  2. AMLODIPINE [Concomitant]
  3. MARCUMAR [Concomitant]
  4. MICARDIS [Concomitant]
  5. TROMCARDIN FORTE (ASPARTATE POTASSIUM/MAGNESIUM ASPARTATE) [Concomitant]

REACTIONS (3)
  - BREAST CANCER MALE [None]
  - GYNAECOMASTIA [None]
  - LYMPHADENOPATHY [None]
